FAERS Safety Report 13926519 (Version 1)
Quarter: 2017Q3

REPORT INFORMATION
  Report Type: Spontaneous
  Country: US (occurrence: None)
  Receive Date: 20170831
  Receipt Date: 20170831
  Transmission Date: 20171127
  Serious: No
  Sender: FDA-Public Use
  Company Number: None

PATIENT
  Age: 63 Year
  Sex: Female
  Weight: 64.8 kg

DRUGS (2)
  1. CYTARABINE. [Suspect]
     Active Substance: CYTARABINE
     Dates: end: 20170403
  2. IDARUBICIN [Suspect]
     Active Substance: IDARUBICIN
     Dates: end: 20140401

REACTIONS (1)
  - Disease progression [None]

NARRATIVE: CASE EVENT DATE: 20161017
